FAERS Safety Report 10531296 (Version 1)
Quarter: 2014Q4

REPORT INFORMATION
  Report Type: Spontaneous
  Country: CN (occurrence: CN)
  Receive Date: 20141021
  Receipt Date: 20141021
  Transmission Date: 20150529
  Serious: Yes (Hospitalization)
  Sender: FDA-Public Use
  Company Number: PHHY2014CN137254

PATIENT
  Age: 70 Year
  Sex: Male
  Weight: 67.9 kg

DRUGS (2)
  1. TRILEPTAL [Suspect]
     Active Substance: OXCARBAZEPINE
     Indication: EPILEPSY
     Dosage: 0.15 G, QD
     Route: 048
  2. TRILEPTAL [Suspect]
     Active Substance: OXCARBAZEPINE
     Dosage: 0.45 G, BID
     Route: 048
     Dates: start: 20140215, end: 20140519

REACTIONS (1)
  - Atrioventricular block [Recovering/Resolving]

NARRATIVE: CASE EVENT DATE: 20140519
